FAERS Safety Report 5243968-6 (Version None)
Quarter: 2007Q1

REPORT INFORMATION
  Report Type: 
  Country: None (occurrence: None)
  Receive Date: 20070222
  Receipt Date: 20070216
  Transmission Date: 20070707
  Serious: Yes (Other)
  Sender: FDA-Public Use
  Company Number: US-BAYER-200614756BCC

PATIENT
  Age: 56 Year
  Sex: Female
  Weight: 84 kg

DRUGS (3)
  1. EXTRA STENGTH BAYER BACK + BODY PAIN [Suspect]
     Indication: PAIN
     Dosage: TOTAL DAILY DOSE: 1000 MG  UNIT DOSE: 500 MG
     Route: 048
     Dates: start: 20061117
  2. CENTRUM SILVER [Concomitant]
  3. Q-10 [Concomitant]

REACTIONS (2)
  - LOSS OF CONSCIOUSNESS [None]
  - VOMITING [None]
